FAERS Safety Report 25014232 (Version 1)
Quarter: 2025Q1

REPORT INFORMATION
  Report Type: Spontaneous
  Country: US (occurrence: US)
  Receive Date: 20250226
  Receipt Date: 20250226
  Transmission Date: 20250408
  Serious: Yes (Other)
  Sender: BRISTOL-MYERS SQUIBB COMPANY
  Company Number: US-BRISTOL-MYERS SQUIBB COMPANY-2025-024528

PATIENT
  Age: 60 Year
  Sex: Female

DRUGS (3)
  1. POMALYST [Suspect]
     Active Substance: POMALIDOMIDE
     Indication: Plasma cell myeloma
     Dosage: DAILY X 21D/28D
     Route: 048
     Dates: start: 20241004, end: 20241013
  2. POMALYST [Suspect]
     Active Substance: POMALIDOMIDE
     Dosage: DAILY X 21D/28D
     Route: 048
     Dates: start: 20241017
  3. POMALYST [Suspect]
     Active Substance: POMALIDOMIDE
     Dosage: 3MG EVERYOTHER DAY
     Route: 048
     Dates: start: 20250115

REACTIONS (3)
  - Rash pruritic [Unknown]
  - Treatment noncompliance [Unknown]
  - Off label use [Unknown]

NARRATIVE: CASE EVENT DATE: 20241013
